FAERS Safety Report 10018944 (Version 2)
Quarter: 2014Q2

REPORT INFORMATION
  Report Type: Report from Study
  Country: US (occurrence: US)
  Receive Date: 20140318
  Receipt Date: 20140422
  Transmission Date: 20141212
  Serious: Yes (Hospitalization)
  Sender: FDA-Public Use
  Company Number: US-GLAXOSMITHKLINE-A1065219A

PATIENT
  Age: 68 Year
  Sex: Female
  Weight: 77.1 kg

DRUGS (10)
  1. TRAMETINIB [Suspect]
     Indication: ENDOMETRIAL ADENOCARCINOMA
     Dosage: 1.5MG PER DAY
     Route: 048
     Dates: start: 20140212, end: 20140221
  2. GSK2141795 [Suspect]
     Indication: ENDOMETRIAL ADENOCARCINOMA
     Dosage: 50MG PER DAY
     Route: 048
     Dates: start: 20140212, end: 20140220
  3. METOPROLOL [Concomitant]
  4. CALCIUM [Concomitant]
  5. CLINDAMYCIN [Concomitant]
  6. MULTIVITAMIN [Concomitant]
  7. HYDROCORTISONE [Concomitant]
  8. INSULIN [Concomitant]
  9. BUTAMBEN [Concomitant]
  10. REGLAN [Concomitant]

REACTIONS (7)
  - Fatigue [Recovering/Resolving]
  - Hypersensitivity [Recovered/Resolved]
  - Confusional state [Recovered/Resolved]
  - Rash maculo-papular [Recovered/Resolved]
  - Syncope [Recovered/Resolved]
  - Dehydration [Recovered/Resolved]
  - Cerebrovascular accident [Unknown]
